FAERS Safety Report 8672165 (Version 5)
Quarter: 2013Q1

REPORT INFORMATION
  Report Type: Spontaneous
  Country: US (occurrence: US)
  Receive Date: 20120719
  Receipt Date: 20130326
  Transmission Date: 20140127
  Serious: No
  Sender: FDA-Public Use
  Company Number: US-BIOGENIDEC-2012BI023928

PATIENT
  Age: 65 Year
  Sex: Male

DRUGS (7)
  1. AVONEX [Suspect]
     Indication: MULTIPLE SCLEROSIS
     Route: 030
     Dates: start: 20120630, end: 20120630
  2. AVONEX [Suspect]
     Indication: MULTIPLE SCLEROSIS
     Route: 030
     Dates: start: 20120702
  3. AVONEX [Suspect]
     Indication: MULTIPLE SCLEROSIS
     Route: 030
  4. BACLOFEN [Concomitant]
     Indication: MUSCLE TIGHTNESS
  5. BACLOFEN [Concomitant]
     Indication: MUSCLE SPASTICITY
  6. BACLOFEN [Concomitant]
     Indication: ASTHENIA
  7. BACLOFEN [Concomitant]
     Indication: MUSCULOSKELETAL STIFFNESS

REACTIONS (8)
  - Adrenocortical steroid therapy [Recovered/Resolved]
  - Muscular weakness [Recovered/Resolved]
  - Pain in extremity [Not Recovered/Not Resolved]
  - Muscle tightness [Recovered/Resolved]
  - Musculoskeletal stiffness [Recovered/Resolved]
  - Pain [Not Recovered/Not Resolved]
  - Influenza like illness [Not Recovered/Not Resolved]
  - Abasia [Not Recovered/Not Resolved]
